FAERS Safety Report 9097051 (Version 1)
Quarter: 2013Q1

REPORT INFORMATION
  Report Type: Spontaneous
  Country: AR (occurrence: None)
  Receive Date: 20130125
  Receipt Date: 20130125
  Transmission Date: 20140127
  Serious: Yes (Hospitalization, Other)
  Sender: FDA-Public Use
  Company Number: 2013P1000832

PATIENT
  Age: 35 Year
  Sex: Male

DRUGS (4)
  1. ISONIAZID [Suspect]
     Indication: PULMONARY TUBERCULOMA
     Dosage: ?UNKNOWN  -  UNKNOWN
  2. ETHAMBUTOL [Suspect]
     Dosage: ?UNKNOWN  -  UNKNOWN
  3. RIFAMPICIN [Suspect]
     Dosage: ?UNKNOWN  -  UNKNOWN
  4. PYRAZINAMIDE [Suspect]
     Dosage: ?UNKNOWN  -  UNKNOWN

REACTIONS (2)
  - Hepatitis toxic [None]
  - Drug reaction with eosinophilia and systemic symptoms [None]
